FAERS Safety Report 8770458 (Version 1)
Quarter: 2012Q4

REPORT INFORMATION
  Report Type: 
  Country: HK (occurrence: HK)
  Receive Date: 20120906
  Receipt Date: 20120906
  Transmission Date: 20130627
  Serious: Yes (Hospitalization)
  Sender: FDA-Public Use
  Company Number: PHHY2012HK074475

PATIENT
  Age: 34 Day
  Sex: Female

DRUGS (8)
  1. CICLOSPORIN [Suspect]
     Indication: HISTIOCYTOSIS HAEMATOPHAGIC
  2. CICLOSPORIN [Suspect]
     Indication: LACTIC ACIDOSIS
  3. DEXAMETHASONE [Concomitant]
     Indication: LACTIC ACIDOSIS
  4. DEXAMETHASONE [Concomitant]
     Indication: HISTIOCYTOSIS HAEMATOPHAGIC
  5. ETOPOSIDE [Concomitant]
     Indication: HISTIOCYTOSIS HAEMATOPHAGIC
  6. ETOPOSIDE [Concomitant]
     Indication: LACTIC ACIDOSIS
  7. VANCOMYCIN [Concomitant]
     Indication: HISTIOCYTOSIS HAEMATOPHAGIC
  8. VANCOMYCIN [Concomitant]
     Indication: LACTIC ACIDOSIS

REACTIONS (4)
  - Renal impairment [Unknown]
  - Condition aggravated [Unknown]
  - Lactic acidosis [None]
  - Drug level increased [None]
